FAERS Safety Report 5868412-7 (Version None)
Quarter: 2008Q3

REPORT INFORMATION
  Report Type: 
  Country: None (occurrence: None)
  Receive Date: 20080828
  Receipt Date: 20080821
  Transmission Date: 20090109
  Serious: Yes (Hospitalization, Other)
  Sender: FDA-Public Use
  Company Number: 08H-163-0314704-00

PATIENT
  Age: 72 Year
  Sex: Female
  Weight: 116 kg

DRUGS (5)
  1. POTASSIUM CHLORIDE [Suspect]
     Indication: DRUG USE FOR UNKNOWN INDICATION
     Dosage: INTRAVENOUS
     Route: 042
     Dates: start: 20080807, end: 20080807
  2. CEFTRIAXONE [Concomitant]
  3. SODIUM CHLORIDE 0.9% [Concomitant]
  4. MAGNESIUM SULFATE [Concomitant]
  5. 5% DEXTROSE (GLUCOSE) [Concomitant]

REACTIONS (4)
  - BLOOD GLUCOSE ABNORMAL [None]
  - DEPRESSED LEVEL OF CONSCIOUSNESS [None]
  - GENERAL PHYSICAL HEALTH DETERIORATION [None]
  - POLYMYALGIA RHEUMATICA [None]
